FAERS Safety Report 10310309 (Version 3)
Quarter: 2015Q1

REPORT INFORMATION
  Report Type: Spontaneous
  Country: RO (occurrence: RO)
  Receive Date: 20140717
  Receipt Date: 20150224
  Transmission Date: 20150720
  Serious: Yes (Life-Threatening, Hospitalization, Other)
  Sender: FDA-Public Use
  Company Number: RO-BAYER-2014-107147

PATIENT
  Age: 24 Year
  Sex: Female

DRUGS (1)
  1. JAYDESS [Suspect]
     Active Substance: LEVONORGESTREL
     Indication: CONTRACEPTION
     Dosage: 13.5 MCG/24HR, CONT
     Route: 015
     Dates: start: 201402, end: 20140525

REACTIONS (8)
  - Ectopic pregnancy with contraceptive device [Recovered/Resolved with Sequelae]
  - Dyspareunia [None]
  - Device expulsion [None]
  - Procedural pain [None]
  - Vomiting in pregnancy [Recovered/Resolved with Sequelae]
  - Ruptured ectopic pregnancy [Recovered/Resolved with Sequelae]
  - Drug ineffective [None]
  - Abdominal pain lower [Recovered/Resolved]

NARRATIVE: CASE EVENT DATE: 2014
